FAERS Safety Report 16139448 (Version 2)
Quarter: 2019Q3

REPORT INFORMATION
  Report Type: Report from Study
  Country: US (occurrence: US)
  Receive Date: 20190401
  Receipt Date: 20190708
  Transmission Date: 20191004
  Serious: Yes (Other)
  Sender: FDA-Public Use
  Company Number: US-TEVA-2019-US-1032087

PATIENT
  Sex: Female

DRUGS (6)
  1. ESCITALOPRAM [Concomitant]
     Active Substance: ESCITALOPRAM OXALATE
  2. CLONAZEPAM. [Concomitant]
     Active Substance: CLONAZEPAM
  3. LYZA [Concomitant]
     Active Substance: NORETHINDRONE
  4. ALPRAZOLAM. [Concomitant]
     Active Substance: ALPRAZOLAM
  5. COPAXONE [Suspect]
     Active Substance: GLATIRAMER ACETATE
     Indication: MULTIPLE SCLEROSIS
     Dosage: LIQUID
     Route: 058
     Dates: start: 20170323
  6. LEXAPRO [Concomitant]
     Active Substance: ESCITALOPRAM OXALATE

REACTIONS (3)
  - Drug ineffective [Unknown]
  - Multiple sclerosis [Recovered/Resolved]
  - Atrophy [Unknown]
